FAERS Safety Report 4482375-0 (Version None)
Quarter: 2004Q4

REPORT INFORMATION
  Report Type: 
  Country: None (occurrence: None)
  Receive Date: 20041022
  Receipt Date: 20030918
  Transmission Date: 20050328
  Serious: No
  Sender: FDA-Public Use
  Company Number: US-BRISTOL-MYERS SQUIBB COMPANY-12387270

PATIENT
  Age: 63 Year
  Sex: Male
  Weight: 86 kg

DRUGS (6)
  1. BUSPAR [Suspect]
     Indication: ANXIETY
     Dosage: 1-10MG TABLET TID
     Route: 048
     Dates: start: 20030801
  2. MULTI-VITAMIN [Concomitant]
  3. VITAMIN B COMPLEX CAP [Concomitant]
  4. COENZYME Q10 [Concomitant]
  5. SAW PALMETTO [Concomitant]
  6. LIPITOR [Concomitant]

REACTIONS (2)
  - DYSURIA [None]
  - POLLAKIURIA [None]
